FAERS Safety Report 5033512-0 (Version None)
Quarter: 2006Q2

REPORT INFORMATION
  Report Type: 
  Country: None (occurrence: None)
  Receive Date: 20060623
  Receipt Date: 20060519
  Transmission Date: 20061013
  Serious: Yes (Death, Hospitalization)
  Sender: FDA-Public Use
  Company Number: JP-AVENTIS-200611567JP

PATIENT
  Age: 71 Year
  Sex: Male
  Weight: 34.1 kg

DRUGS (20)
  1. KETEK [Suspect]
     Indication: NOCARDIOSIS
     Route: 048
     Dates: start: 20060407, end: 20060408
  2. MENESIT [Concomitant]
     Indication: PARKINSON'S DISEASE
     Route: 048
     Dates: start: 19750101, end: 20060524
  3. GASTER [Concomitant]
     Indication: REFLUX OESOPHAGITIS
     Route: 048
     Dates: start: 20040426, end: 20060409
  4. TOWARAT [Concomitant]
     Indication: HYPERTENSION
     Route: 048
     Dates: end: 20060409
  5. MUCOSTA [Concomitant]
     Indication: REFLUX OESOPHAGITIS
     Route: 048
     Dates: end: 20060409
  6. GANATON [Concomitant]
     Indication: PARKINSON'S DISEASE
     Route: 048
     Dates: end: 20060409
  7. CABASER [Concomitant]
     Indication: PARKINSON'S DISEASE
     Route: 048
     Dates: start: 20040607, end: 20060524
  8. SELEGILINE HYDROCHLORIDE [Concomitant]
     Indication: PARKINSON'S DISEASE
     Route: 048
     Dates: start: 20031110, end: 20060524
  9. FERROMIA [Concomitant]
     Indication: REFLUX OESOPHAGITIS
     Route: 048
     Dates: start: 20040224, end: 20060409
  10. FERROMIA [Concomitant]
     Indication: ANAEMIA
     Route: 048
     Dates: start: 20040224, end: 20060409
  11. SHAKUYAKUKANZOUTOU [Concomitant]
     Indication: PARKINSON'S DISEASE
     Route: 048
     Dates: start: 20060405, end: 20060409
  12. PENTCILLIN [Concomitant]
     Indication: NOCARDIOSIS
     Route: 042
     Dates: start: 20060317, end: 20060320
  13. FIRSTCIN [Concomitant]
     Indication: NOCARDIOSIS
     Route: 042
     Dates: start: 20060320, end: 20060407
  14. KLARICID [Concomitant]
     Indication: NOCARDIOSIS
     Route: 048
     Dates: start: 20060409, end: 20060413
  15. AMIKACIN SULFATE [Concomitant]
     Indication: NOCARDIOSIS
     Route: 042
     Dates: start: 20060413, end: 20060417
  16. ROCEPHIN [Concomitant]
     Indication: NOCARDIOSIS
     Route: 042
     Dates: start: 20060413, end: 20060426
  17. HABEKACIN [Concomitant]
     Indication: NOCARDIOSIS
     Route: 042
     Dates: start: 20060417, end: 20060426
  18. VANCOMYCIN [Concomitant]
     Indication: NOCARDIOSIS
     Route: 042
     Dates: start: 20060426, end: 20060507
  19. MINOCYCLINE HCL [Concomitant]
     Indication: NOCARDIOSIS
     Route: 042
     Dates: start: 20060507, end: 20060516
  20. TARGOCID [Concomitant]
     Indication: NOCARDIOSIS
     Route: 042
     Dates: start: 20060516, end: 20060522

REACTIONS (3)
  - DEPRESSED LEVEL OF CONSCIOUSNESS [None]
  - HYPOGLYCAEMIA [None]
  - RESPIRATORY FAILURE [None]
